FAERS Safety Report 5387151-2 (Version None)
Quarter: 2007Q3

REPORT INFORMATION
  Report Type: 
  Country: None (occurrence: None)
  Receive Date: 20070711
  Receipt Date: 20070626
  Transmission Date: 20080115
  Serious: Yes (Other)
  Sender: FDA-Public Use
  Company Number: DSA_30146_2007

PATIENT
  Sex: Female
  Weight: 81.6475 kg

DRUGS (4)
  1. VASOTEC [Suspect]
     Dosage: (5 MG QD ORAL)
     Route: 048
     Dates: start: 19870101
  2. VASOTEC                       /005749002/ 5 MG [Suspect]
     Dosage: (5 MG QD ORAL)
     Route: 048
     Dates: start: 20070620
  3. VASOTEC [Suspect]
     Dosage: (5 MG QD ORAL)
     Route: 048
  4. CHEMOTHERAPEUTICS [Concomitant]

REACTIONS (3)
  - COLON CANCER [None]
  - NECK PAIN [None]
  - RASH [None]
